FAERS Safety Report 6390270-5 (Version None)
Quarter: 2009Q4

REPORT INFORMATION
  Report Type: 
  Country: None (occurrence: None)
  Receive Date: 20091006
  Receipt Date: 20090930
  Transmission Date: 20100525
  Serious: Yes (Hospitalization)
  Sender: FDA-Public Use
  Company Number: PL-WYE-H10623009

PATIENT
  Sex: Male
  Weight: 84 kg

DRUGS (6)
  1. TEMSIROLIMUS [Suspect]
     Indication: RENAL CELL CARCINOMA
     Route: 042
     Dates: start: 20090616, end: 20090812
  2. ETAMSILATE [Concomitant]
     Indication: THROMBOCYTOPENIA
     Dosage: UNKNOWN
     Dates: start: 20090630, end: 20090820
  3. GLIMEPIRIDE [Concomitant]
     Indication: DIABETES MELLITUS
     Dosage: UNKNOWN
     Dates: start: 20040701
  4. FENOFIBRATE [Concomitant]
     Indication: HYPERTRIGLYCERIDAEMIA
     Dosage: UNKNOWN
     Dates: start: 20090630, end: 20090816
  5. BEVACIZUMAB [Concomitant]
     Indication: RENAL CELL CARCINOMA
     Route: 042
     Dates: start: 20090616, end: 20090812
  6. METFORMIN [Concomitant]
     Indication: DIABETES MELLITUS
     Dosage: UNKNOWN
     Dates: start: 20040701

REACTIONS (2)
  - CEREBROSPINAL FISTULA [None]
  - DIZZINESS [None]
